FAERS Safety Report 25670371 (Version 3)
Quarter: 2025Q3

REPORT INFORMATION
  Report Type: Spontaneous
  Country: US (occurrence: US)
  Receive Date: 20250812
  Receipt Date: 20250915
  Transmission Date: 20251021
  Serious: No
  Sender: PFIZER
  Company Number: US-PFIZER INC-202500159004

PATIENT
  Age: 73 Year
  Sex: Female
  Weight: 51.35 kg

DRUGS (3)
  1. PAXLOVID [Suspect]
     Active Substance: NIRMATRELVIR\RITONAVIR
     Indication: COVID-19
     Dosage: ALL THREE TABLETS FROM ONE BLISTER EACH, TWICE A DAY
     Dates: start: 20250710, end: 20250715
  2. CELEBREX [Suspect]
     Active Substance: CELECOXIB
     Indication: Arthritis
     Dosage: 200 MG, 2X/DAY
     Route: 048
  3. TYLENOL [Suspect]
     Active Substance: ACETAMINOPHEN
     Indication: Arthritis

REACTIONS (3)
  - COVID-19 [Unknown]
  - Dysgeusia [Unknown]
  - Dysphonia [Unknown]

NARRATIVE: CASE EVENT DATE: 20250710
